FAERS Safety Report 4362392-1 (Version None)
Quarter: 2004Q2

REPORT INFORMATION
  Report Type: 
  Country: None (occurrence: None)
  Receive Date: 20040521
  Receipt Date: 20030908
  Transmission Date: 20050107
  Serious: Yes (Death)
  Sender: FDA-Public Use
  Company Number: US-MERCK-0309USA00840

PATIENT
  Age: 55 Year
  Sex: Male
  Weight: 123 kg

DRUGS (7)
  1. TYLENOL W/ CODEINE NO. 3 [Concomitant]
     Indication: ARTHRALGIA
     Route: 048
     Dates: start: 20010626, end: 20010628
  2. VICODIN [Concomitant]
     Indication: ARTHRALGIA
     Route: 065
  3. FLONASE [Concomitant]
     Route: 065
  4. MOTRIN [Concomitant]
     Indication: ARTHRALGIA
     Route: 065
     Dates: start: 20010625
  5. SERZONE [Concomitant]
     Route: 065
  6. VIOXX [Suspect]
     Indication: ARTHRALGIA
     Route: 048
     Dates: start: 20010626, end: 20010628
  7. VITAMINS (UNSPECIFIED) [Concomitant]
     Route: 065

REACTIONS (9)
  - ACUTE MYOCARDIAL INFARCTION [None]
  - CIRCULATORY COLLAPSE [None]
  - FEELING ABNORMAL [None]
  - LOSS OF CONSCIOUSNESS [None]
  - PAIN IN EXTREMITY [None]
  - PULSE ABSENT [None]
  - PUPIL FIXED [None]
  - RESPIRATORY ARREST [None]
  - SLEEP APNOEA SYNDROME [None]
